FAERS Safety Report 10537544 (Version 1)
Quarter: 2014Q4

REPORT INFORMATION
  Report Type: Spontaneous
  Country: US (occurrence: None)
  Receive Date: 20141022
  Receipt Date: 20141022
  Transmission Date: 20150529
  Serious: No
  Sender: FDA-Public Use
  Company Number: None

PATIENT
  Age: 65 Year
  Sex: Female
  Weight: 99.34 kg

DRUGS (3)
  1. LEVOFLOXACIN. [Suspect]
     Active Substance: LEVOFLOXACIN
     Indication: HORDEOLUM
     Dosage: 3 TWICE DAILY TAKEN BY MOUTH
     Route: 048
     Dates: start: 20140922, end: 20140924
  2. LEVOFLOXACIN. [Suspect]
     Active Substance: LEVOFLOXACIN
     Indication: OCULAR HYPERAEMIA
     Dosage: 3 TWICE DAILY TAKEN BY MOUTH
     Route: 048
     Dates: start: 20140922, end: 20140924
  3. LEVOFLOXACIN. [Suspect]
     Active Substance: LEVOFLOXACIN
     Indication: EYE PRURITUS
     Dosage: 3 TWICE DAILY TAKEN BY MOUTH
     Route: 048
     Dates: start: 20140922, end: 20140924

REACTIONS (2)
  - Erythema [None]
  - Pruritus [None]

NARRATIVE: CASE EVENT DATE: 20140922
